FAERS Safety Report 9380163 (Version 1)
Quarter: 2013Q2

REPORT INFORMATION
  Report Type: Spontaneous
  Country: NO (occurrence: None)
  Receive Date: 20130628
  Receipt Date: 20130628
  Transmission Date: 20140414
  Serious: Yes (Other)
  Sender: FDA-Public Use
  Company Number: AUR-APL-2013-05281

PATIENT
  Age: 73 Year
  Sex: Male

DRUGS (3)
  1. SIMVASTATIN (SIMVASTATIN) [Suspect]
     Indication: PROPHYLAXIS
     Route: 048
     Dates: start: 2010, end: 2010
  2. LIPITOR (ATORVASTATIN CALCIUM) [Suspect]
     Route: 048
     Dates: start: 2010, end: 2010
  3. METFORMIN [Concomitant]

REACTIONS (1)
  - Myalgia [None]
